FAERS Safety Report 11854461 (Version 1)
Quarter: 2015Q4

REPORT INFORMATION
  Report Type: Other
  Country: US (occurrence: US)
  Receive Date: 20151221
  Receipt Date: 20151221
  Transmission Date: 20160305
  Serious: Yes (Other)
  Sender: FDA-Public Use
  Company Number: US-JUBILANT GENERICS LIMITED-1045711

PATIENT

DRUGS (1)
  1. OLANZAPINE LONG-ACTING INJECTION [Suspect]
     Active Substance: OLANZAPINE PAMOATE

REACTIONS (1)
  - Post-injection delirium sedation syndrome [Unknown]

NARRATIVE: CASE EVENT DATE: 20151208
